FAERS Safety Report 6710671-2 (Version None)
Quarter: 2010Q2

REPORT INFORMATION
  Report Type: 
  Country: None (occurrence: None)
  Receive Date: 20100504
  Receipt Date: 20100504
  Transmission Date: 20101027
  Serious: Yes (Other)
  Sender: FDA-Public Use
  Company Number: None

PATIENT
  Age: 38 Year
  Sex: Female
  Weight: 73.4827 kg

DRUGS (1)
  1. CLARINEX [Suspect]
     Indication: HYPERSENSITIVITY
     Dosage: 1 TABLET ONCE DAILY PO
     Route: 048
     Dates: start: 20100421, end: 20100430

REACTIONS (4)
  - MYALGIA [None]
  - PRURITUS [None]
  - RASH [None]
  - URTICARIA [None]
